FAERS Safety Report 18968226 (Version 1)
Quarter: 2021Q1

REPORT INFORMATION
  Report Type: Spontaneous
  Country: US (occurrence: US)
  Receive Date: 20210303
  Receipt Date: 20210303
  Transmission Date: 20210420
  Serious: Yes (Death)
  Sender: FDA-Public Use
  Company Number: None

PATIENT
  Age: 70 Year
  Sex: Female

DRUGS (22)
  1. SPIRONOLACTONE. [Concomitant]
     Active Substance: SPIRONOLACTONE
  2. ALBUTEROL HFA [Concomitant]
     Active Substance: ALBUTEROL SULFATE
  3. TORSEMIDE. [Concomitant]
     Active Substance: TORSEMIDE
  4. HYDROCHLOROTHIAZIDE. [Concomitant]
     Active Substance: HYDROCHLOROTHIAZIDE
  5. LOPERAMIDE [Concomitant]
     Active Substance: LOPERAMIDE
  6. TADALAFIL. [Concomitant]
     Active Substance: TADALAFIL
  7. AMIODARONE [Concomitant]
     Active Substance: AMIODARONE
  8. PANTOPRAZOLE [Concomitant]
     Active Substance: PANTOPRAZOLE
  9. CALCITRATE?VITAMIN D [Concomitant]
  10. LIDOCAINE PATCH [Concomitant]
     Active Substance: LIDOCAINE
  11. ALVESCO HFA [Concomitant]
  12. UPTRAVI [Concomitant]
     Active Substance: SELEXIPAG
  13. TRAZODONE [Concomitant]
     Active Substance: TRAZODONE HYDROCHLORIDE
  14. FERROUS SULFATE. [Concomitant]
     Active Substance: FERROUS SULFATE
  15. TYLENOL [Concomitant]
     Active Substance: ACETAMINOPHEN
  16. POTASSIUM CHLORIDE. [Concomitant]
     Active Substance: POTASSIUM CHLORIDE
  17. METOCLOPRAMIDE. [Concomitant]
     Active Substance: METOCLOPRAMIDE
  18. GABAPENTIN. [Concomitant]
     Active Substance: GABAPENTIN
  19. FOSAMAX [Concomitant]
     Active Substance: ALENDRONATE SODIUM
  20. AMBRISENTAN 10MG TABLETS 30/BO: 10MG [Suspect]
     Active Substance: AMBRISENTAN
     Indication: PULMONARY HYPERTENSION
     Route: 048
     Dates: start: 20190826, end: 20210301
  21. MVI?MINERALS [Concomitant]
  22. CYANOCOBALAMIN. [Concomitant]
     Active Substance: CYANOCOBALAMIN

REACTIONS (7)
  - Right ventricular failure [None]
  - Gastrointestinal disorder [None]
  - Septic shock [None]
  - General physical health deterioration [None]
  - Cardiogenic shock [None]
  - Tachycardia [None]
  - Terminal state [None]
